FAERS Safety Report 12534850 (Version 1)
Quarter: 2016Q3

REPORT INFORMATION
  Report Type: Spontaneous
  Country: DE (occurrence: DE)
  Receive Date: 20160707
  Receipt Date: 20160707
  Transmission Date: 20161109
  Serious: Yes (Other)
  Sender: FDA-Public Use
  Company Number: DE-BRISTOL-MYERS SQUIBB COMPANY-BMS-2016-053544

PATIENT
  Age: 69 Year
  Sex: Male

DRUGS (1)
  1. OPDIVO [Suspect]
     Active Substance: NIVOLUMAB
     Indication: NON-SMALL CELL LUNG CANCER
     Dosage: 3 MG/KG, Q2WK
     Route: 065
     Dates: start: 201507, end: 201509

REACTIONS (8)
  - Myocarditis [Unknown]
  - Malignant melanoma [Unknown]
  - Troponin T increased [Unknown]
  - Fibrin D dimer increased [Unknown]
  - C-reactive protein increased [Unknown]
  - Dyspnoea [Unknown]
  - N-terminal prohormone brain natriuretic peptide increased [Unknown]
  - Chest pain [Unknown]
